FAERS Safety Report 8739726 (Version 2)
Quarter: 2015Q3

REPORT INFORMATION
  Report Type: Report from Study
  Country: US (occurrence: US)
  Receive Date: 20120823
  Receipt Date: 20150911
  Transmission Date: 20151125
  Serious: Yes (Death)
  Sender: FDA-Public Use
  Company Number: US-ROCHE-1099892

PATIENT
  Sex: Male
  Weight: 86.26 kg

DRUGS (5)
  1. MORPHINE SULFATE. [Concomitant]
     Active Substance: MORPHINE SULFATE
     Route: 042
  2. MORPHINE SULFATE. [Concomitant]
     Active Substance: MORPHINE SULFATE
     Route: 042
  3. ACTIVASE [Suspect]
     Active Substance: ALTEPLASE
     Indication: MYOCARDIAL INFARCTION
     Route: 040
  4. ACTIVASE [Suspect]
     Active Substance: ALTEPLASE
     Dosage: 100 MG INFUSING AT 50 CC/HR
     Route: 042
  5. LIDOCAINE HCL [Concomitant]
     Active Substance: LIDOCAINE HYDROCHLORIDE
     Dosage: 2MG/MIN OR 30CC/HR
     Route: 040

REACTIONS (5)
  - Cardio-respiratory arrest [Fatal]
  - Acute myocardial infarction [Fatal]
  - Vomiting [Unknown]
  - Coronary artery disease [Fatal]
  - Ventricular fibrillation [Fatal]
